FAERS Safety Report 18697098 (Version 1)
Quarter: 2021Q1

REPORT INFORMATION
  Report Type: Report from Study
  Country: US (occurrence: US)
  Receive Date: 20210104
  Receipt Date: 20210104
  Transmission Date: 20210419
  Serious: Yes (Death, Hospitalization)
  Sender: FDA-Public Use
  Company Number: US-BAUSCH-BL-2020-039125

PATIENT
  Age: 67 Year
  Sex: Female

DRUGS (1)
  1. XIFAXAN [Suspect]
     Active Substance: RIFAXIMIN
     Indication: COGNITIVE DISORDER
     Dosage: STARTED ABOUT A YEAR (PRIOR TO THE DATE OF THE INITIAL REPORT)
     Route: 048
     Dates: start: 2019

REACTIONS (7)
  - Renal failure [Fatal]
  - Hip fracture [Unknown]
  - Cognitive disorder [Unknown]
  - Liver disorder [Fatal]
  - Fall [Unknown]
  - Product dose omission issue [Unknown]
  - Symptom recurrence [Unknown]

NARRATIVE: CASE EVENT DATE: 20201216
